FAERS Safety Report 11220275 (Version 3)
Quarter: 2015Q3

REPORT INFORMATION
  Report Type: Report from Study
  Country: GB (occurrence: GB)
  Receive Date: 20150625
  Receipt Date: 20150812
  Transmission Date: 20151125
  Serious: Yes (Hospitalization)
  Sender: FDA-Public Use
  Company Number: GB-GILEAD-2015-0159700

PATIENT
  Age: 79 Year
  Sex: Male
  Weight: 70 kg

DRUGS (20)
  1. METOCLOPRAMIDE. [Concomitant]
     Active Substance: METOCLOPRAMIDE
     Indication: CHRONIC LYMPHOCYTIC LEUKAEMIA
     Dosage: 10 MG, UNK
     Route: 048
     Dates: start: 20150429
  2. ACICLOVIR [Concomitant]
     Active Substance: ACYCLOVIR
     Indication: CHRONIC LYMPHOCYTIC LEUKAEMIA
     Dosage: 400 MG, UNK
     Dates: start: 20150429, end: 20150429
  3. IDELALISIB [Suspect]
     Active Substance: IDELALISIB
     Indication: CHRONIC LYMPHOCYTIC LEUKAEMIA
     Dosage: 150 MG, QD
     Route: 048
     Dates: start: 20150429, end: 20150507
  4. FLUCONAZOLE. [Concomitant]
     Active Substance: FLUCONAZOLE
     Indication: ANTIFUNGAL PROPHYLAXIS
     Dosage: 50 MG, QD
     Route: 048
  5. PARACETAMOL [Concomitant]
     Active Substance: ACETAMINOPHEN
     Indication: CHRONIC LYMPHOCYTIC LEUKAEMIA
     Dosage: 1 DF, UNK
     Route: 048
     Dates: start: 20150429, end: 20150429
  6. COTRIMOXAZOLE [Concomitant]
     Active Substance: SULFAMETHOXAZOLE\TRIMETHOPRIM
  7. OFATUMUMAB [Suspect]
     Active Substance: OFATUMUMAB
     Indication: CHRONIC LYMPHOCYTIC LEUKAEMIA
     Dosage: 300 MG, CYCLICAL
     Route: 042
     Dates: start: 20150429, end: 20150429
  8. FUROSEMIDE. [Suspect]
     Active Substance: FUROSEMIDE
     Indication: DIURETIC THERAPY
     Dosage: 40 MG, QD
     Route: 048
     Dates: end: 20150603
  9. DALTEPARIN [Concomitant]
     Active Substance: DALTEPARIN
     Indication: THROMBOSIS PROPHYLAXIS
     Dosage: 5000 DF, QD
     Route: 058
     Dates: start: 201506
  10. AMITRIPTYLINE [Concomitant]
     Active Substance: AMITRIPTYLINE
     Indication: NEUROPATHY PERIPHERAL
     Dosage: 10 MG, QD
     Route: 048
  11. CHLORPHENIRAMINE                   /00072501/ [Concomitant]
     Active Substance: CHLORPHENIRAMINE
     Indication: CHRONIC LYMPHOCYTIC LEUKAEMIA
     Dosage: 10 MG, UNK
     Route: 042
     Dates: start: 20150429, end: 20150429
  12. BENDAMUSTINE [Suspect]
     Active Substance: BENDAMUSTINE
     Indication: CHRONIC LYMPHOCYTIC LEUKAEMIA
     Dosage: 125 MG, CYCLICAL
     Route: 042
     Dates: start: 20150429, end: 20150430
  13. ACICLOVIR [Concomitant]
     Active Substance: ACYCLOVIR
     Indication: ANTIVIRAL PROPHYLAXIS
     Dosage: 400 MG, QD
     Route: 048
  14. INDAPAMIDE. [Suspect]
     Active Substance: INDAPAMIDE
     Indication: HYPERTENSION
     Dosage: 2.5 MG, QD
     Route: 048
     Dates: end: 201506
  15. RANITIDINE [Concomitant]
     Active Substance: RANITIDINE\RANITIDINE HYDROCHLORIDE
     Indication: ANTACID THERAPY
     Dosage: 150 MG, QD
     Route: 048
  16. BETAHISTINE [Concomitant]
     Active Substance: BETAHISTINE
     Indication: DIZZINESS
     Dosage: 16 MG, UNK
     Route: 048
     Dates: end: 201506
  17. CREON [Concomitant]
     Active Substance: PANCRELIPASE AMYLASE\PANCRELIPASE LIPASE\PANCRELIPASE PROTEASE
     Indication: PANCREATIC INSUFFICIENCY
     Dosage: 40000 DF, UNK
     Route: 048
  18. ALLOPURINOL. [Concomitant]
     Active Substance: ALLOPURINOL
     Indication: CHRONIC LYMPHOCYTIC LEUKAEMIA
     Dosage: 300 MG, UNK
     Route: 048
     Dates: start: 20150429, end: 201505
  19. HYDROCORTISONE. [Concomitant]
     Active Substance: HYDROCORTISONE
     Indication: CHRONIC LYMPHOCYTIC LEUKAEMIA
     Dosage: 10 MG, UNK
     Route: 042
     Dates: start: 20150429, end: 20150505
  20. G-CSF [Concomitant]
     Active Substance: GRANULOCYTE COLONY-STIMULATING FACTOR NOS

REACTIONS (11)
  - Dizziness [None]
  - Oxygen saturation decreased [None]
  - Nausea [None]
  - Pain [None]
  - Sputum discoloured [None]
  - Anaemia [None]
  - Tachycardia [None]
  - Orthostatic hypotension [Recovered/Resolved]
  - Lethargy [None]
  - Hypertension [None]
  - Pyrexia [None]

NARRATIVE: CASE EVENT DATE: 20150603
